FAERS Safety Report 6829891-1 (Version None)
Quarter: 2010Q3

REPORT INFORMATION
  Report Type: 
  Country: None (occurrence: None)
  Receive Date: 20100711
  Receipt Date: 20100616
  Transmission Date: 20110219
  Serious: No
  Sender: FDA-Public Use
  Company Number: US-ALLERGAN-0916865US

PATIENT
  Age: 47 Year
  Sex: Female

DRUGS (2)
  1. LATISSE [Suspect]
     Indication: PRODUCT USED FOR UNKNOWN INDICATION
     Dosage: UNK
  2. RESTASIS [Suspect]
     Indication: GROWTH OF EYELASHES
     Dosage: 1 GTT, UNKNOWN

REACTIONS (1)
  - MADAROSIS [None]
